FAERS Safety Report 18958743 (Version 2)
Quarter: 2021Q1

REPORT INFORMATION
  Report Type: Report from Study
  Country: US (occurrence: US)
  Receive Date: 20210302
  Receipt Date: 20210329
  Transmission Date: 20210420
  Serious: Yes (Hospitalization)
  Sender: FDA-Public Use
  Company Number: US-B.I. PHARMACEUTICALS,INC./RIDGEFIELD-2021-BI-079528

PATIENT
  Age: 76 Year
  Sex: Female

DRUGS (2)
  1. OFEV [Suspect]
     Active Substance: NINTEDANIB
     Indication: PULMONARY FIBROSIS
     Route: 048
     Dates: start: 20210217
  2. OFEV [Suspect]
     Active Substance: NINTEDANIB
     Indication: FIBROSIS
     Dosage: TAKE ONE BY MOUTH TWICE DAILY.
     Route: 048
     Dates: start: 20210123

REACTIONS (8)
  - Discoloured vomit [Not Recovered/Not Resolved]
  - Haematemesis [Recovering/Resolving]
  - Vomiting [Recovering/Resolving]
  - Off label use [Unknown]
  - Oesophageal ulcer [Recovered/Resolved]
  - Pain in extremity [Not Recovered/Not Resolved]
  - Nausea [Unknown]
  - Oesophageal candidiasis [Recovered/Resolved]

NARRATIVE: CASE EVENT DATE: 202012
